FAERS Safety Report 10405255 (Version 2)
Quarter: 2014Q3

REPORT INFORMATION
  Report Type: Report from Study
  Country: US (occurrence: US)
  Receive Date: 20140825
  Receipt Date: 20140825
  Transmission Date: 20150326
  Serious: Yes (Hospitalization)
  Sender: FDA-Public Use
  Company Number: PHHO2010US12221

PATIENT
  Age: 42 Year
  Sex: Female
  Weight: 50.45 kg

DRUGS (1)
  1. ZOLEDRONATE [Suspect]
     Active Substance: ZOLEDRONIC ACID
     Dosage: MONTHLY
     Route: 042
     Dates: start: 20090923, end: 20100721

REACTIONS (2)
  - Abdominal distension [Unknown]
  - Haematemesis [Unknown]

NARRATIVE: CASE EVENT DATE: 201007
